FAERS Safety Report 9704302 (Version 1)
Quarter: 2013Q4

REPORT INFORMATION
  Report Type: Spontaneous
  Country: US (occurrence: None)
  Receive Date: 20131121
  Receipt Date: 20131121
  Transmission Date: 20140711
  Serious: Yes (Hospitalization)
  Sender: FDA-Public Use
  Company Number: None

PATIENT
  Age: 57 Year
  Sex: Male
  Weight: 70.8 kg

DRUGS (19)
  1. PROPOFOL [Suspect]
     Indication: AGITATION
     Dosage: 25-50 MCG/KG/MIN
     Dates: start: 20111010, end: 20111015
  2. HEPARIN [Concomitant]
  3. ACETAMINOPHEN [Concomitant]
  4. CALCIUM ACETATE [Concomitant]
  5. CHLORHEXIDINE [Concomitant]
  6. CHLOROTHIAZIDE [Concomitant]
  7. DOCUSATE [Concomitant]
  8. FENTANYL [Concomitant]
  9. FUROSEMIDE [Concomitant]
  10. HYDROCORTISONE [Concomitant]
  11. HYDROMORPHONE [Concomitant]
  12. INSULIN ASPART [Concomitant]
  13. LACTULOSE [Concomitant]
  14. METOPROLOL [Concomitant]
  15. OXYCODONE [Concomitant]
  16. PHENYLEPHRINE [Concomitant]
  17. PUPERACILLIN/TAZOBACTAM [Concomitant]
  18. RANITIDINE [Concomitant]
  19. TEN [Concomitant]

REACTIONS (3)
  - Agitation [None]
  - Lipase increased [None]
  - Amylase increased [None]
